FAERS Safety Report 16571025 (Version 2)
Quarter: 2019Q3

REPORT INFORMATION
  Report Type: Report from Study
  Country: DE (occurrence: DE)
  Receive Date: 20190715
  Receipt Date: 20190729
  Transmission Date: 20191004
  Serious: Yes (Hospitalization, Other)
  Sender: FDA-Public Use
  Company Number: DE-TAKEDA-2019TUS043321

PATIENT
  Age: 77 Year
  Sex: Female
  Weight: 58 kg

DRUGS (6)
  1. DEXAMETHASONE. [Suspect]
     Active Substance: DEXAMETHASONE
     Dosage: 8 MILLIGRAM
     Route: 065
     Dates: end: 20190531
  2. CLEXANE [Concomitant]
     Active Substance: ENOXAPARIN SODIUM
     Indication: PRODUCT USED FOR UNKNOWN INDICATION
     Dosage: 0.4 MILLIGRAM, QD
     Route: 030
     Dates: start: 20190604
  3. LENALIDOMIDE [Suspect]
     Active Substance: LENALIDOMIDE
     Indication: PLASMA CELL MYELOMA
     Dosage: 15 MILLIGRAM
     Route: 065
     Dates: end: 20190531
  4. HEPARIN [Concomitant]
     Active Substance: HEPARIN SODIUM
     Indication: PRODUCT USED FOR UNKNOWN INDICATION
     Dosage: UNK
  5. BORTEZOMIB. [Suspect]
     Active Substance: BORTEZOMIB
     Indication: PLASMA CELL MYELOMA
     Dosage: 2.16 MILLIGRAM
     Route: 065
     Dates: start: 20190218, end: 20190520
  6. DEXAMETHASONE. [Suspect]
     Active Substance: DEXAMETHASONE
     Indication: PLASMA CELL MYELOMA
     Dosage: 40 MILLIGRAM
     Route: 065
     Dates: start: 20190218, end: 20190531

REACTIONS (5)
  - Constipation [Recovered/Resolved]
  - Diverticulum [Recovered/Resolved]
  - Large intestine perforation [Recovered/Resolved]
  - Septic shock [Recovered/Resolved]
  - Peritonitis [Recovered/Resolved]

NARRATIVE: CASE EVENT DATE: 20190604
